FAERS Safety Report 9703370 (Version 1)
Quarter: 2013Q4

REPORT INFORMATION
  Report Type: Report from Study
  Country: US (occurrence: US)
  Receive Date: 20131122
  Receipt Date: 20131122
  Transmission Date: 20140711
  Serious: Yes (Hospitalization)
  Sender: FDA-Public Use
  Company Number: PHEH2013US024323

PATIENT
  Age: 43 Year
  Sex: Female

DRUGS (15)
  1. GILENYA [Suspect]
     Indication: MULTIPLE SCLEROSIS
     Dosage: 0.5 MG, QD
     Route: 048
     Dates: start: 201303
  2. GILENYA [Suspect]
     Dosage: 0.5 MG, QD
     Route: 048
     Dates: start: 20131017, end: 20131019
  3. ZANTAC [Concomitant]
     Dosage: 300 MG, UNK
  4. KEPPRA [Concomitant]
     Dosage: 500 MG, UNK
  5. ZETIA [Concomitant]
     Dosage: 10 MG, UNK
  6. SYMBICORT [Concomitant]
  7. ALBUTEROL [Concomitant]
     Dosage: 90 UG, UNK
  8. SINGULAIR [Concomitant]
     Dosage: 10 MG, UNK
  9. TOPAMAX [Concomitant]
     Dosage: 25 MG, UNK
  10. TUMS [Concomitant]
     Dosage: 500 MG, UNK
  11. NASONEX [Concomitant]
     Dosage: 50 UG, UNK
  12. BACLOFEN [Concomitant]
     Dosage: 10 MG, UNK
  13. NEURONTIN [Concomitant]
     Dosage: 100 MG, UNK
  14. PRAVACHOL [Concomitant]
     Dosage: 10 MG, UNK
  15. XARELTO [Concomitant]
     Dosage: 10 MG, UNK

REACTIONS (2)
  - Asthma [Recovered/Resolved]
  - Respiratory disorder [Recovered/Resolved]
